FAERS Safety Report 12996551 (Version 2)
Quarter: 2016Q4

REPORT INFORMATION
  Report Type: Spontaneous
  Country: BR (occurrence: BR)
  Receive Date: 20161204
  Receipt Date: 20161208
  Transmission Date: 20170207
  Serious: Yes (Other)
  Sender: FDA-Public Use
  Company Number: BR-GLAXOSMITHKLINE-BR2016GSK176458

PATIENT
  Age: 84 Year
  Sex: Female
  Weight: 65 kg

DRUGS (5)
  1. ZINNAT [Suspect]
     Active Substance: CEFUROXIME AXETIL
     Dosage: 1 DF, QD, TABLET
     Route: 048
     Dates: start: 20161127
  2. MAXITROL [Suspect]
     Active Substance: DEXAMETHASONE\NEOMYCIN SULFATE\POLYMYXIN B SULFATE
     Indication: CONJUNCTIVITIS
     Dosage: 1 DF, TID, DROP(S)
     Route: 047
     Dates: start: 20161124
  3. PREDNISONE. [Suspect]
     Active Substance: PREDNISONE
     Indication: PRODUCT USED FOR UNKNOWN INDICATION
     Dosage: UNK
     Route: 048
     Dates: start: 20161124, end: 20161126
  4. ZINNAT [Suspect]
     Active Substance: CEFUROXIME AXETIL
     Indication: TRACHEOBRONCHITIS
     Dosage: 1 DF, QD
     Route: 048
     Dates: start: 20161124
  5. ATROVENT [Suspect]
     Active Substance: IPRATROPIUM BROMIDE
     Indication: TRACHEOBRONCHITIS
     Dosage: 30 UNK, TID
     Route: 055
     Dates: start: 20161124, end: 20161125

REACTIONS (6)
  - Heart rate decreased [Recovered/Resolved]
  - Accidental overdose [Recovered/Resolved]
  - Hyperhidrosis [Recovered/Resolved]
  - Product use issue [Not Recovered/Not Resolved]
  - Cough [Recovered/Resolved]
  - Hypothermia [Recovered/Resolved]

NARRATIVE: CASE EVENT DATE: 20161124
